FAERS Safety Report 9551836 (Version 2)
Quarter: 2013Q4

REPORT INFORMATION
  Report Type: Spontaneous
  Country: US (occurrence: US)
  Receive Date: 20130925
  Receipt Date: 20131219
  Transmission Date: 20140711
  Serious: No
  Sender: FDA-Public Use
  Company Number: US-MYLANLABS-2013S1019045

PATIENT
  Sex: Female
  Weight: 81.65 kg

DRUGS (4)
  1. ATORVASTATIN [Suspect]
     Indication: BLOOD CHOLESTEROL INCREASED
     Route: 048
  2. LISINOPRIL [Concomitant]
  3. ALPRAZOLAM [Concomitant]
  4. THYROID PREPARATIONS [Concomitant]
     Indication: THYROID DISORDER

REACTIONS (2)
  - Skin reaction [Unknown]
  - Muscle spasms [Not Recovered/Not Resolved]
